FAERS Safety Report 5307641-8 (Version None)
Quarter: 2007Q2

REPORT INFORMATION
  Report Type: 
  Country: None (occurrence: None)
  Receive Date: 20070418
  Receipt Date: 20040915
  Transmission Date: 20071010
  Serious: Yes (Hospitalization)
  Sender: FDA-Public Use
  Company Number: 2004AP000762

PATIENT
  Age: 80 Year
  Sex: Female

DRUGS (12)
  1. METFORMIN HCL [Suspect]
     Dosage: 500 MG; TID
  2. CARBAMAZEPINE [Suspect]
     Dosage: 200 MG ; BID
  3. ATORVASTATIN CALCIUM [Suspect]
     Dosage: 20 MG ;HS
  4. VENLAFAXINE HCL [Suspect]
     Dosage: 75 MG; QD
  5. ACETAMINOPHEN [Suspect]
     Dosage: 500 MG ; QW
  6. PROCHLORPERAZINE MALEATE [Concomitant]
  7. GLYCERYL TRINITRATE (GLYCERYL TRINITRATE) [Concomitant]
  8. DYPIRIDAMOLE/ASPIRIN SLOW RELEASE [Concomitant]
  9. FELODIPINE [Concomitant]
  10. ATENOLOL [Concomitant]
  11. RAMIPRIL [Concomitant]
  12. OXAZEPAM [Concomitant]

REACTIONS (8)
  - ACUTE HEPATIC FAILURE [None]
  - ANTINUCLEAR ANTIBODY POSITIVE [None]
  - CONFUSIONAL STATE [None]
  - DEMENTIA [None]
  - DRUG INTERACTION [None]
  - DRUG LEVEL INCREASED [None]
  - FALL [None]
  - HEPATOTOXICITY [None]
